FAERS Safety Report 16769137 (Version 3)
Quarter: 2019Q3

REPORT INFORMATION
  Report Type: Spontaneous
  Country: US (occurrence: US)
  Receive Date: 20190903
  Receipt Date: 20190923
  Transmission Date: 20191005
  Serious: No
  Sender: FDA-Public Use
  Company Number: US-JNJFOC-20190836320

PATIENT
  Sex: Male
  Weight: 89.44 kg

DRUGS (4)
  1. EMERGEN C [Concomitant]
     Active Substance: MINERALS\VITAMINS
     Route: 048
  2. REMICADE [Suspect]
     Active Substance: INFLIXIMAB
     Indication: CROHN^S DISEASE
     Route: 042
     Dates: start: 20170226, end: 20180502
  3. PREDNISONE. [Concomitant]
     Active Substance: PREDNISONE
     Route: 048
  4. OMEGA 3                            /01333901/ [Concomitant]
     Active Substance: FISH OIL\TOCOPHEROL
     Route: 048

REACTIONS (2)
  - Drug ineffective [Unknown]
  - Nonspecific reaction [Unknown]
